FAERS Safety Report 8174284-0 (Version None)
Quarter: 2012Q1

REPORT INFORMATION
  Report Type: 
  Country: None (occurrence: None)
  Receive Date: 20120229
  Receipt Date: 20120223
  Transmission Date: 20120608
  Serious: Yes (Other)
  Sender: FDA-Public Use
  Company Number: US-BAYER-2012-019221

PATIENT
  Sex: Male

DRUGS (1)
  1. LEVITRA [Suspect]

REACTIONS (4)
  - JOINT SWELLING [None]
  - ARTHRALGIA [None]
  - MUSCULOSKELETAL STIFFNESS [None]
  - PAIN IN EXTREMITY [None]
